FAERS Safety Report 17531842 (Version 1)
Quarter: 2020Q1

REPORT INFORMATION
  Report Type: Report from Study
  Country: MX (occurrence: MX)
  Receive Date: 20200311
  Receipt Date: 20200311
  Transmission Date: 20200409
  Serious: Yes (Other)
  Sender: FDA-Public Use
  Company Number: MX-ASTRAZENECA-2020SE34659

PATIENT
  Sex: Female
  Weight: 95 kg

DRUGS (3)
  1. BENZAFIBRATE [Concomitant]
     Active Substance: BEZAFIBRATE
     Indication: BLOOD TRIGLYCERIDES INCREASED
     Dosage: 1 TABLET ORALLY EVERY 24HRS
     Route: 048
     Dates: start: 20200223
  2. XIGDUO XR [Suspect]
     Active Substance: DAPAGLIFLOZIN PROPANEDIOL\METFORMIN HYDROCHLORIDE
     Indication: TYPE 2 DIABETES MELLITUS
     Dosage: 5/1000 MG, 1 TABLET ORALLY EVERY 12 HOURS
     Route: 048
     Dates: start: 20200223
  3. BENZAFIBRATE [Concomitant]
     Active Substance: BEZAFIBRATE
     Indication: BLOOD CHOLESTEROL INCREASED
     Dosage: 1 TABLET ORALLY EVERY 24HRS
     Route: 048
     Dates: start: 20200223

REACTIONS (4)
  - Fatigue [Unknown]
  - Blood glucose abnormal [Unknown]
  - Decreased appetite [Not Recovered/Not Resolved]
  - Nausea [Recovered/Resolved]
